FAERS Safety Report 15838751 (Version 2)
Quarter: 2019Q1

REPORT INFORMATION
  Report Type: Spontaneous
  Country: US (occurrence: US)
  Receive Date: 20190117
  Receipt Date: 20190219
  Transmission Date: 20190417
  Serious: Yes (Hospitalization, Other)
  Sender: FDA-Public Use
  Company Number: US-PFIZER INC-2018245365

PATIENT
  Age: 79 Year
  Sex: Female
  Weight: 62.6 kg

DRUGS (3)
  1. REVATIO [Suspect]
     Active Substance: SILDENAFIL CITRATE
     Indication: PULMONARY HYPERTENSION
     Dosage: 20 MG, 3X/DAY
     Route: 048
     Dates: start: 2018
  2. ATENOLOL. [Concomitant]
     Active Substance: ATENOLOL
     Indication: HYPERTENSION
     Dosage: 25 MG, 1X/DAY (IN MORNING)
  3. LOSARTAN. [Concomitant]
     Active Substance: LOSARTAN
     Indication: HYPERTENSION
     Dosage: 50 MG, 1X/DAY (AT NIGHT)

REACTIONS (5)
  - Weight decreased [Recovering/Resolving]
  - Fluid retention [Recovering/Resolving]
  - Loss of personal independence in daily activities [Recovering/Resolving]
  - Pulmonary hypertension [Unknown]
  - Dyspnoea [Unknown]

NARRATIVE: CASE EVENT DATE: 201805
